FAERS Safety Report 8087126-9 (Version None)
Quarter: 2012Q1

REPORT INFORMATION
  Report Type: 
  Country: None (occurrence: None)
  Receive Date: 20120128
  Receipt Date: 20110513
  Transmission Date: 20120608
  Serious: No
  Sender: FDA-Public Use
  Company Number: US-ABBOTT-11P-163-0725550-00

PATIENT
  Age: 36 Year
  Sex: Female

DRUGS (4)
  1. HUMIRA [Suspect]
     Indication: PSORIASIS
     Dosage: 80MG LOADING DOSE
     Dates: start: 20110510, end: 20110510
  2. LIBRAX [Concomitant]
     Indication: IRRITABLE BOWEL SYNDROME
  3. HUMIRA [Suspect]
  4. TOPAMAX [Concomitant]
     Indication: MIGRAINE

REACTIONS (3)
  - DEVICE MALFUNCTION [None]
  - MALAISE [None]
  - VOMITING [None]
